FAERS Safety Report 5705173-6 (Version None)
Quarter: 2008Q2

REPORT INFORMATION
  Report Type: 
  Country: None (occurrence: None)
  Receive Date: 20080410
  Receipt Date: 20080402
  Transmission Date: 20081010
  Serious: Yes (Hospitalization)
  Sender: FDA-Public Use
  Company Number: 163-20785-08040159

PATIENT
  Age: 88 Year
  Sex: Female

DRUGS (1)
  1. THALOMID [Suspect]
     Indication: MULTIPLE MYELOMA
     Dosage: 50 MG, 1 IN  1 D, ORAL
     Route: 048
     Dates: start: 20071218

REACTIONS (4)
  - FALL [None]
  - FRACTURE [None]
  - PNEUMONIA [None]
  - SYNCOPE [None]
